FAERS Safety Report 23686838 (Version 1)
Quarter: 2024Q1

REPORT INFORMATION
  Report Type: Spontaneous
  Country: US (occurrence: None)
  Receive Date: 20240328
  Receipt Date: 20240328
  Transmission Date: 20240409
  Serious: Yes (Hospitalization)
  Sender: FDA-Public Use
  Company Number: None

PATIENT
  Age: 58 Year
  Sex: Female

DRUGS (3)
  1. INGREZZA [Suspect]
     Active Substance: VALBENAZINE
     Indication: Dyskinesia
     Dosage: FREQUENCY : AT BEDTIME;?
     Route: 048
     Dates: start: 20240224, end: 20240307
  2. Haloperidol 5mg tablets [Concomitant]
     Dates: start: 20220720
  3. Lisinopril/HCTZ 20/12.5mg tablets [Concomitant]
     Dates: start: 20220831

REACTIONS (3)
  - Swollen tongue [None]
  - Hypersensitivity [None]
  - Therapy cessation [None]

NARRATIVE: CASE EVENT DATE: 20240307
